FAERS Safety Report 26041696 (Version 1)
Quarter: 2025Q4

REPORT INFORMATION
  Report Type: Spontaneous
  Country: EU (occurrence: EU)
  Receive Date: 20251113
  Receipt Date: 20251113
  Transmission Date: 20260117
  Serious: Yes (Death, Life-Threatening, Hospitalization, Other)
  Sender: SANDOZ
  Company Number: EU-ELI_LILLY_AND_COMPANY-PL201908006847

PATIENT
  Age: 46 Year
  Sex: Female

DRUGS (26)
  1. AMOXICILLIN\CLAVULANATE POTASSIUM [Suspect]
     Active Substance: AMOXICILLIN\CLAVULANATE POTASSIUM
     Indication: Antibiotic therapy
     Dosage: UNK
     Route: 065
  2. AMOXICILLIN\CLAVULANATE POTASSIUM [Suspect]
     Active Substance: AMOXICILLIN\CLAVULANATE POTASSIUM
     Indication: Urinary tract infection
  3. CLAVULANIC ACID [Suspect]
     Active Substance: CLAVULANIC ACID
     Indication: Bacteriuria
     Dosage: UNK
     Route: 065
  4. ARIPIPRAZOLE [Concomitant]
     Active Substance: ARIPIPRAZOLE
     Indication: Product used for unknown indication
     Dosage: 7.5 MG, QD
     Route: 065
  5. ARIPIPRAZOLE [Interacting]
     Active Substance: ARIPIPRAZOLE
     Indication: Bipolar disorder
     Dosage: 7.5 MG, QD (7.5 MG / D)
     Route: 048
  6. CEFUROXIME AXETIL [Interacting]
     Active Substance: CEFUROXIME AXETIL
     Indication: Antibiotic therapy
     Dosage: UNK
     Route: 065
  7. CEFUROXIME AXETIL [Interacting]
     Active Substance: CEFUROXIME AXETIL
     Indication: Antibiotic therapy
  8. CEFUROXIME AXETIL [Interacting]
     Active Substance: CEFUROXIME AXETIL
     Indication: Bacterial infection
  9. CEFUROXIME AXETIL [Interacting]
     Active Substance: CEFUROXIME AXETIL
     Indication: Urinary tract infection
  10. CIPROFLOXACIN [Interacting]
     Active Substance: CIPROFLOXACIN
     Indication: Bacterial test
     Dosage: UNK
     Route: 065
  11. CIPROFLOXACIN [Interacting]
     Active Substance: CIPROFLOXACIN
     Indication: Antibiotic therapy
  12. CIPROFLOXACIN [Interacting]
     Active Substance: CIPROFLOXACIN
     Indication: Urinary tract infection
  13. ITOPRIDE [Interacting]
     Active Substance: ITOPRIDE
     Indication: Gastrooesophageal reflux disease
     Dosage: 150 MG, TID
     Route: 048
  14. ITOPRIDE [Interacting]
     Active Substance: ITOPRIDE
     Dosage: 50 MILLIGRAM, QD
     Route: 048
  15. LEVOFLOXACIN [Interacting]
     Active Substance: LEVOFLOXACIN
     Indication: Antibiotic therapy
     Dosage: UNK
     Route: 065
  16. LEVOFLOXACIN [Interacting]
     Active Substance: LEVOFLOXACIN
     Indication: Antibiotic therapy
  17. LEVOFLOXACIN [Interacting]
     Active Substance: LEVOFLOXACIN
     Indication: Bacterial infection
  18. LEVOFLOXACIN [Interacting]
     Active Substance: LEVOFLOXACIN
     Indication: Urinary tract infection
  19. NIFUROXAZIDE [Interacting]
     Active Substance: NIFUROXAZIDE
     Indication: Urinary tract infection
     Dosage: UNK
     Route: 065
  20. OLANZAPINE [Interacting]
     Active Substance: OLANZAPINE
     Indication: Bipolar disorder
     Dosage: 10 MG, QD
     Route: 065
  21. OLANZAPINE [Interacting]
     Active Substance: OLANZAPINE
     Indication: Bipolar disorder
  22. PANTOPRAZOLE [Interacting]
     Active Substance: PANTOPRAZOLE
     Indication: Gastrooesophageal reflux disease
     Dosage: 40 MG, QD
     Route: 048
  23. PANTOPRAZOLE [Interacting]
     Active Substance: PANTOPRAZOLE
     Indication: Reflux gastritis
  24. SULFAMETHOXAZOLE\TRIMETHOPRIM [Interacting]
     Active Substance: SULFAMETHOXAZOLE\TRIMETHOPRIM
     Indication: Product used for unknown indication
     Dosage: UNK
     Route: 065
  25. SULFAMETHOXAZOLE\TRIMETHOPRIM [Interacting]
     Active Substance: SULFAMETHOXAZOLE\TRIMETHOPRIM
     Indication: Bacteriuria
  26. SULFAMETHOXAZOLE [Interacting]
     Active Substance: SULFAMETHOXAZOLE
     Indication: Antibiotic therapy
     Dosage: UNK
     Route: 065

REACTIONS (28)
  - Peritonitis [Fatal]
  - Clostridium difficile infection [Fatal]
  - Intestinal perforation [Fatal]
  - Megacolon [Fatal]
  - Bacterial test positive [Fatal]
  - Urine odour abnormal [Fatal]
  - Trimethylaminuria [Fatal]
  - Drug ineffective [Unknown]
  - Pseudomembranous colitis [Unknown]
  - Dysbiosis [Unknown]
  - Diarrhoea [Not Recovered/Not Resolved]
  - Pyrexia [Not Recovered/Not Resolved]
  - Dysbiosis [Not Recovered/Not Resolved]
  - White blood cells urine positive [Unknown]
  - Oral discomfort [Unknown]
  - Condition aggravated [Not Recovered/Not Resolved]
  - Abdominal pain upper [Not Recovered/Not Resolved]
  - Taste disorder [Not Recovered/Not Resolved]
  - Breath odour [Unknown]
  - Drug interaction [Not Recovered/Not Resolved]
  - Gastrooesophageal reflux disease [Unknown]
  - Bacterial test [Unknown]
  - Inhibitory drug interaction [Not Recovered/Not Resolved]
  - Condition aggravated [Not Recovered/Not Resolved]
  - Parosmia [Unknown]
  - Dyspepsia [Unknown]
  - Bacterial test positive [Unknown]
  - Drug ineffective [Unknown]
